FAERS Safety Report 6115596-1 (Version None)
Quarter: 2009Q1

REPORT INFORMATION
  Report Type: 
  Country: None (occurrence: None)
  Receive Date: 20090313
  Receipt Date: 20090302
  Transmission Date: 20090719
  Serious: Yes (Other)
  Sender: FDA-Public Use
  Company Number: PT-PFIZER INC-2009178384

PATIENT

DRUGS (1)
  1. LYRICA [Suspect]
     Indication: BONE PAIN
     Dosage: 150 DAILY

REACTIONS (9)
  - CHEST DISCOMFORT [None]
  - CONFUSIONAL STATE [None]
  - DRY MOUTH [None]
  - DYSPHONIA [None]
  - DYSPNOEA [None]
  - GAIT DISTURBANCE [None]
  - MUSCLE SPASMS [None]
  - SALIVARY HYPERSECRETION [None]
  - STRIDOR [None]
